FAERS Safety Report 9261653 (Version 1)
Quarter: 2013Q2

REPORT INFORMATION
  Report Type: Spontaneous
  Country: FR (occurrence: FR)
  Receive Date: 20130429
  Receipt Date: 20130429
  Transmission Date: 20140414
  Serious: Yes (Hospitalization)
  Sender: FDA-Public Use
  Company Number: FR-B.I. PHARMACEUTICALS,INC./RIDGEFIELD-2013-FF-01213FF

PATIENT
  Age: 76 Year
  Sex: Male

DRUGS (4)
  1. MOBIC [Suspect]
     Indication: SCIATICA
     Route: 048
     Dates: start: 20120502, end: 20120504
  2. TEVETEN [Suspect]
     Indication: HYPERTENSION
     Dosage: 600 MG
     Route: 048
     Dates: end: 20120504
  3. INDAPAMIDE [Suspect]
     Indication: HYPERTENSION
     Route: 048
     Dates: end: 20120504
  4. KALEORID [Concomitant]
     Route: 048

REACTIONS (1)
  - Renal failure [Recovered/Resolved]
